FAERS Safety Report 7565063-3 (Version None)
Quarter: 2011Q2

REPORT INFORMATION
  Report Type: 
  Country: None (occurrence: None)
  Receive Date: 20110622
  Receipt Date: 20110531
  Transmission Date: 20111010
  Serious: Yes (Other)
  Sender: FDA-Public Use
  Company Number: US-MYLANLABS-2011S1008690

PATIENT
  Age: 26 Year
  Sex: Male
  Weight: 69.85 kg

DRUGS (10)
  1. CLOZAPINE [Suspect]
     Indication: SCHIZOPHRENIA, PARANOID TYPE
     Route: 048
     Dates: start: 20110331, end: 20110401
  2. CLOZAPINE [Suspect]
     Route: 048
     Dates: start: 20110331, end: 20110401
  3. COGENTIN [Concomitant]
     Dates: start: 20110329
  4. AMANTADINE HCL [Concomitant]
     Dates: start: 20110329
  5. CLOZAPINE [Suspect]
     Indication: SCHIZOPHRENIA
     Route: 048
     Dates: start: 20110331, end: 20110401
  6. DEPAKOTE [Concomitant]
     Dates: start: 20110329
  7. CLOZAPINE [Suspect]
     Route: 048
     Dates: start: 20110331, end: 20110401
  8. BUSPAR [Concomitant]
     Dates: start: 20110329
  9. ZYPREXA [Concomitant]
     Dosage: WHILE HALDOL TAPER CONTINUED-WAS OFF CLOZAPINE BY THEN
     Dates: start: 20110426
  10. HALOPERIDOL [Concomitant]
     Dosage: TAPERING
     Dates: start: 20110329

REACTIONS (1)
  - GRANULOCYTOPENIA [None]
